FAERS Safety Report 10219967 (Version 1)
Quarter: 2014Q2

REPORT INFORMATION
  Report Type: Spontaneous
  Country: US (occurrence: US)
  Receive Date: 20140605
  Receipt Date: 20140605
  Transmission Date: 20141212
  Serious: No
  Sender: FDA-Public Use
  Company Number: US-009507513-1405USA015027

PATIENT
  Age: 45 Year
  Sex: Male

DRUGS (3)
  1. PRINIVIL [Suspect]
     Indication: FOCAL SEGMENTAL GLOMERULOSCLEROSIS
     Dosage: 10 MG, QD
     Route: 048
  2. PRINIVIL [Suspect]
     Dosage: 20 MG, QD
     Route: 048
  3. PREDNISONE [Concomitant]
     Indication: FOCAL SEGMENTAL GLOMERULOSCLEROSIS
     Dosage: UNK
     Route: 048

REACTIONS (1)
  - Anaemia [Recovered/Resolved]
